FAERS Safety Report 6029912-2 (Version None)
Quarter: 2009Q1

REPORT INFORMATION
  Report Type: 
  Country: None (occurrence: None)
  Receive Date: 20090107
  Receipt Date: 20090106
  Transmission Date: 20090719
  Serious: Yes (Other)
  Sender: FDA-Public Use
  Company Number: US-JNJFOC-20081007179

PATIENT
  Sex: Female
  Weight: 58.97 kg

DRUGS (5)
  1. LEVAQUIN [Suspect]
     Indication: SINUSITIS
     Route: 048
  2. LIPITOR [Concomitant]
     Indication: BLOOD PRESSURE
     Route: 048
  3. AVAPRO [Concomitant]
     Indication: BLOOD PRESSURE
     Route: 048
  4. SINGULAIR [Concomitant]
     Indication: MULTIPLE ALLERGIES
     Route: 048
  5. CLARITIN [Concomitant]
     Indication: MULTIPLE ALLERGIES
     Route: 048

REACTIONS (6)
  - DEHYDRATION [None]
  - DIZZINESS [None]
  - HYPOTENSION [None]
  - LOSS OF CONSCIOUSNESS [None]
  - NAUSEA [None]
  - PAIN IN EXTREMITY [None]
